FAERS Safety Report 11070177 (Version 4)
Quarter: 2016Q2

REPORT INFORMATION
  Report Type: Report from Study
  Country: AT (occurrence: AT)
  Receive Date: 20150427
  Receipt Date: 20160525
  Transmission Date: 20160815
  Serious: Yes (Death, Hospitalization)
  Sender: FDA-Public Use
  Company Number: AT-BAYER-2015-156281

PATIENT
  Age: 60 Year
  Sex: Male

DRUGS (3)
  1. STIVARGA [Suspect]
     Active Substance: REGORAFENIB
     Indication: COLORECTAL CANCER METASTATIC
     Dosage: 2  X  40MG
     Dates: start: 20150311, end: 20150402
  2. STIVARGA [Suspect]
     Active Substance: REGORAFENIB
     Indication: COLORECTAL CANCER METASTATIC
     Dosage: UNK
     Dates: start: 20150403, end: 20150413
  3. AMOXICILLIN / SULBACTAM [Concomitant]
     Indication: INFECTION
     Dosage: DAILY DOSE 1560 MG
     Dates: start: 20150409, end: 20150416

REACTIONS (3)
  - Decreased appetite [Fatal]
  - Fatigue [Fatal]
  - Dyspnoea [Recovered/Resolved]

NARRATIVE: CASE EVENT DATE: 20150401
